FAERS Safety Report 10474089 (Version 1)
Quarter: 2014Q3

REPORT INFORMATION
  Report Type: Report from Study
  Country: MX (occurrence: MX)
  Receive Date: 20140924
  Receipt Date: 20140924
  Transmission Date: 20150326
  Serious: Yes (Other)
  Sender: FDA-Public Use
  Company Number: PHHY2014MX124577

PATIENT
  Age: 66 Year
  Sex: Female

DRUGS (4)
  1. AVALIDE [Concomitant]
     Active Substance: HYDROCHLOROTHIAZIDE\IRBESARTAN
     Indication: BLOOD PRESSURE ABNORMAL
     Dosage: 1 UKN, DAILY
     Dates: start: 201402
  2. ASPIRIN PROTEC [Concomitant]
     Indication: BLOOD PRESSURE ABNORMAL
     Dosage: 1 UKN, DAILY
     Dates: start: 201402
  3. EUGLUCON [Concomitant]
     Active Substance: GLYBURIDE
     Indication: BLOOD GLUCOSE ABNORMAL
     Dosage: 0.5 UKN, DAILY
     Dates: start: 2009
  4. ACLASTA [Suspect]
     Active Substance: ZOLEDRONIC ACID
     Indication: OSTEOPOROSIS
     Dosage: 5 MG/100ML ANNUALLY
     Route: 042

REACTIONS (1)
  - Blood potassium decreased [Not Recovered/Not Resolved]

NARRATIVE: CASE EVENT DATE: 201406
